FAERS Safety Report 22599764 (Version 1)
Quarter: 2023Q2

REPORT INFORMATION
  Report Type: Report from Study
  Country: IT (occurrence: IT)
  Receive Date: 20230614
  Receipt Date: 20230614
  Transmission Date: 20230721
  Serious: Yes (Hospitalization)
  Sender: FDA-Public Use
  Company Number: None

PATIENT
  Age: 5 Month
  Sex: Female

DRUGS (1)
  1. AZITHROMYCIN [Suspect]
     Active Substance: AZITHROMYCIN
     Dosage: 7.5 ML
     Route: 048
     Dates: start: 20230606, end: 20230606

REACTIONS (3)
  - Medication error [Recovering/Resolving]
  - Overdose [Recovering/Resolving]
  - Infantile diarrhoea [Recovering/Resolving]

NARRATIVE: CASE EVENT DATE: 20230607
